FAERS Safety Report 4885405-7 (Version None)
Quarter: 2005Q4

REPORT INFORMATION
  Report Type: 
  Country: None (occurrence: None)
  Receive Date: 20051220
  Receipt Date: 20050714
  Transmission Date: 20060501
  Serious: Yes (Other)
  Sender: FDA-Public Use
  Company Number: HQWYE267819JUL05

PATIENT
  Age: 38 Year
  Sex: 0
  Weight: 136.2 kg

DRUGS (10)
  1. EFFEXOR XR [Suspect]
     Indication: ANXIETY
     Dosage: SEE IMAGE
     Route: 048
     Dates: start: 20040401, end: 20040601
  2. EFFEXOR XR [Suspect]
     Indication: DEPRESSION
     Dosage: SEE IMAGE
     Route: 048
     Dates: start: 20040401, end: 20040601
  3. EFFEXOR XR [Suspect]
     Indication: ANXIETY
     Dosage: SEE IMAGE
     Route: 048
     Dates: start: 20040601, end: 20040701
  4. EFFEXOR XR [Suspect]
     Indication: DEPRESSION
     Dosage: SEE IMAGE
     Route: 048
     Dates: start: 20040601, end: 20040701
  5. EFFEXOR XR [Suspect]
     Indication: ANXIETY
     Dosage: SEE IMAGE
     Route: 048
     Dates: start: 20040701
  6. EFFEXOR XR [Suspect]
     Indication: DEPRESSION
     Dosage: SEE IMAGE
     Route: 048
     Dates: start: 20040701
  7. DILAUDID [Concomitant]
  8. ATENOLOL [Concomitant]
  9. NORTRIPTYLINE (NORTRIPTYLINE) [Concomitant]
  10. RISPERDAL [Concomitant]

REACTIONS (9)
  - ABNORMAL DREAMS [None]
  - CONDITION AGGRAVATED [None]
  - DEPRESSION [None]
  - DYSSTASIA [None]
  - HEART RATE INCREASED [None]
  - HYPERHIDROSIS [None]
  - NERVOUSNESS [None]
  - PALPITATIONS [None]
  - TREMOR [None]
